FAERS Safety Report 24284808 (Version 1)
Quarter: 2024Q3

REPORT INFORMATION
  Report Type: Other
  Country: IT (occurrence: IT)
  Receive Date: 20240905
  Receipt Date: 20240905
  Transmission Date: 20241017
  Serious: Yes (Other)
  Sender: ALVOGEN
  Company Number: IT-ALVOGEN-2024095393

PATIENT
  Age: 44 Year
  Sex: Male

DRUGS (6)
  1. DOXORUBICIN [Suspect]
     Active Substance: DOXORUBICIN
     Indication: Hodgkin^s disease
     Dosage: ON DAY 1 AND 11 OF 21 DAY CYCLE; TOTAL OF LAST 2 CYCLES
  2. DOXORUBICIN [Suspect]
     Active Substance: DOXORUBICIN
     Indication: Hodgkin^s disease
     Dosage: INCREASED, ON DAY 1 AND 11 OF 21 DAY CYCLE; TOTAL OF FIRST 4 CYCLES
  3. BLEOMYCIN [Suspect]
     Active Substance: BLEOMYCIN SULFATE
     Indication: Hodgkin^s disease
     Dosage: ON DAY 1 AND 11 OF 21 DAY CYCLE; TOTAL OF 6 CYCLES
  4. VINBLASTINE [Suspect]
     Active Substance: VINBLASTINE
     Indication: Hodgkin^s disease
     Dosage: ON DAY 1 AND 11 OF 21 DAY CYCLE; TOTAL OF 6 CYCLES
  5. DACARBAZINE [Suspect]
     Active Substance: DACARBAZINE
     Indication: Hodgkin^s disease
     Dosage: ON DAY 1 AND 11 OF 21 DAY CYCLE; TOTAL OF 6 CYCLES
  6. LENOGRASTIM [Concomitant]
     Active Substance: LENOGRASTIM
     Indication: Prophylaxis
     Dosage: DD 6-8 ON DAY 1, DD 17-19 ON DAY 11 OF ALL 6 CYCLES.

REACTIONS (1)
  - Acute coronary syndrome [Unknown]
